FAERS Safety Report 25319320 (Version 6)
Quarter: 2025Q2

REPORT INFORMATION
  Report Type: Spontaneous
  Country: US (occurrence: US)
  Receive Date: 20250515
  Receipt Date: 20250626
  Transmission Date: 20250717
  Serious: No
  Sender: PFIZER
  Company Number: US-PFIZER INC-PV202500055290

PATIENT
  Age: 12 Year
  Sex: Male

DRUGS (2)
  1. GENOTROPIN [Suspect]
     Active Substance: SOMATROPIN
     Dosage: 1.1 MG, DAILY
  2. GENOTROPIN [Suspect]
     Active Substance: SOMATROPIN
     Dosage: 1.4 MG, DAILY

REACTIONS (5)
  - Headache [Unknown]
  - Drug dose omission by device [Unknown]
  - Device defective [Unknown]
  - Device use issue [Unknown]
  - Device information output issue [Unknown]
